FAERS Safety Report 12753897 (Version 1)
Quarter: 2016Q3

REPORT INFORMATION
  Report Type: Spontaneous
  Country: US (occurrence: US)
  Receive Date: 20160915
  Receipt Date: 20160915
  Transmission Date: 20161109
  Serious: Yes (Hospitalization)
  Sender: FDA-Public Use
  Company Number: US-ASTELLAS-2015US046318

PATIENT
  Sex: Male

DRUGS (1)
  1. XTANDI [Suspect]
     Active Substance: ENZALUTAMIDE
     Indication: HORMONE REFRACTORY BREAST CANCER
     Dosage: 160 MG (FOUR CAPSULES), ONCE DAILY
     Route: 048

REACTIONS (2)
  - Blood urine present [Unknown]
  - Dyspnoea [Unknown]
